FAERS Safety Report 8059366-6 (Version None)
Quarter: 2012Q1

REPORT INFORMATION
  Report Type: 
  Country: None (occurrence: None)
  Receive Date: 20120120
  Receipt Date: 20120120
  Transmission Date: 20120608
  Serious: Yes (Other)
  Sender: FDA-Public Use
  Company Number: None

PATIENT
  Age: 26 Year
  Sex: Female
  Weight: 45.359 kg

DRUGS (1)
  1. MEDERMA SCAR GEL [Suspect]
     Indication: SCAR
     Dosage: VERY SMALL
     Route: 061
     Dates: start: 20111208, end: 20111210

REACTIONS (3)
  - SKIN EXFOLIATION [None]
  - PRURITUS [None]
  - ERYTHEMA [None]
